FAERS Safety Report 10039406 (Version 2)
Quarter: 2014Q1

REPORT INFORMATION
  Report Type: Report from Study
  Country: US (occurrence: US)
  Receive Date: 20140326
  Receipt Date: 20140326
  Transmission Date: 20141002
  Serious: No
  Sender: FDA-Public Use
  Company Number: PHEH2014US003855

PATIENT
  Sex: Female

DRUGS (12)
  1. TASIGNA [Suspect]
     Indication: CHRONIC MYELOID LEUKAEMIA
     Dosage: 400 MG, BID
     Route: 048
     Dates: start: 201212, end: 20140115
  2. DELTASONE [Concomitant]
     Dates: start: 20140305
  3. SYNTHROID [Concomitant]
     Dates: start: 20140224
  4. DIAZIDE [Concomitant]
     Dates: start: 20140224
  5. SPRYCEL//DASATINIB [Concomitant]
     Dates: start: 20140219
  6. ATARAX                                  /POR/ [Concomitant]
     Dates: start: 20140207
  7. TEMOVATE [Concomitant]
     Dates: start: 20140203
  8. CALCIUM CARBONATE [Concomitant]
  9. BACTROBAN                               /NET/ [Concomitant]
     Dosage: UNK UKN, UNK
     Dates: start: 20130821
  10. FERROUS SULFATE [Concomitant]
     Dosage: UNK
     Dates: start: 20130515
  11. ASPIRIN [Concomitant]
     Dates: start: 20110823
  12. MULTI-VIT [Concomitant]
     Dates: start: 20110823

REACTIONS (4)
  - Rash [Recovering/Resolving]
  - Drug hypersensitivity [Recovering/Resolving]
  - Pruritus [Recovering/Resolving]
  - Blister [Recovering/Resolving]
